FAERS Safety Report 8825045 (Version 1)
Quarter: 2012Q4

REPORT INFORMATION
  Report Type: 
  Country: BR (occurrence: BR)
  Receive Date: 20121004
  Receipt Date: 20121004
  Transmission Date: 20130627
  Serious: Yes (Other)
  Sender: FDA-Public Use
  Company Number: PHHY2012BR086286

PATIENT
  Sex: Female
  Weight: 45.5 kg

DRUGS (7)
  1. RITALIN LA [Suspect]
     Indication: ANXIETY
     Dosage: 3 DF, a day
     Route: 048
     Dates: start: 2010
  2. METICORTEN [Concomitant]
     Indication: RENAL TRANSPLANT
     Dosage: 2 DF, per dar
     Route: 048
     Dates: start: 1995
  3. RAPAMUNE [Concomitant]
     Dosage: 2 DF, BID
     Route: 048
  4. ATENOLOL [Concomitant]
     Dosage: 2 DF, per day
     Route: 048
  5. MONOCORDIL [Concomitant]
     Dosage: 1 DF, daily
     Route: 048
  6. BENICAR [Concomitant]
     Dosage: 1 DF, UNK
     Route: 048
  7. AMLODIPINE [Concomitant]
     Dosage: 2 DF, BID
     Route: 048

REACTIONS (1)
  - Osteoarthritis [Recovering/Resolving]
